FAERS Safety Report 4933369-X (Version None)
Quarter: 2006Q1

REPORT INFORMATION
  Report Type: 
  Country: None (occurrence: None)
  Receive Date: 20060306
  Receipt Date: 20060222
  Transmission Date: 20060701
  Serious: Yes (Hospitalization)
  Sender: FDA-Public Use
  Company Number: US-MERCK-0603USA00489

PATIENT
  Age: 76 Year
  Sex: Male

DRUGS (4)
  1. VIOXX [Suspect]
     Indication: OSTEOARTHRITIS
     Route: 048
  2. VIOXX [Suspect]
     Indication: CORONARY ARTERY DISEASE
     Route: 048
  3. ASPIRIN [Suspect]
     Indication: OSTEOARTHRITIS
     Route: 065
  4. ASPIRIN [Suspect]
     Indication: CORONARY ARTERY DISEASE
     Route: 065

REACTIONS (2)
  - DIAPHRAGMATIC DISORDER [None]
  - SMALL INTESTINAL HAEMORRHAGE [None]
